FAERS Safety Report 4726764-5 (Version None)
Quarter: 2005Q3

REPORT INFORMATION
  Report Type: 
  Country: None (occurrence: None)
  Receive Date: 20050725
  Receipt Date: 20050420
  Transmission Date: 20060218
  Serious: No
  Sender: FDA-Public Use
  Company Number: USA050496218

PATIENT
  Age: 37 Year
  Sex: Male

DRUGS (4)
  1. STRATTERA [Suspect]
     Indication: ATTENTION DEFICIT/HYPERACTIVITY DISORDER
     Dosage: 40 MG/2 DAY
     Dates: start: 20050401
  2. SEROQUEL [Concomitant]
  3. GEODON [Concomitant]
  4. LUVOX [Concomitant]

REACTIONS (3)
  - MANIA [None]
  - MUSCLE SPASMS [None]
  - PSYCHOMOTOR HYPERACTIVITY [None]
